FAERS Safety Report 7042857-4 (Version None)
Quarter: 2010Q4

REPORT INFORMATION
  Report Type: 
  Country: None (occurrence: None)
  Receive Date: 20101013
  Receipt Date: 20100219
  Transmission Date: 20110411
  Serious: No
  Sender: FDA-Public Use
  Company Number: US-ASTRAZENECA-2009SE31760

PATIENT
  Age: 71 Year
  Sex: Female
  Weight: 54.9 kg

DRUGS (5)
  1. SYMBICORT [Suspect]
     Indication: CHRONIC OBSTRUCTIVE PULMONARY DISEASE
     Dosage: 320 MCG BID
     Route: 055
     Dates: start: 20090601
  2. ALBUTEROL [Concomitant]
     Dosage: TID
     Route: 055
  3. PLAVIX [Concomitant]
  4. SIMVASTATIN [Concomitant]
  5. PANTOPRAZOLE [Concomitant]

REACTIONS (5)
  - DRY MOUTH [None]
  - DYSGEUSIA [None]
  - DYSPNOEA [None]
  - GLOSSITIS [None]
  - THROAT IRRITATION [None]
